FAERS Safety Report 10767529 (Version 1)
Quarter: 2015Q1

REPORT INFORMATION
  Report Type: Spontaneous
  Country: US (occurrence: US)
  Receive Date: 20150205
  Receipt Date: 20150205
  Transmission Date: 20150721
  Serious: Yes (Other)
  Sender: FDA-Public Use
  Company Number: US-PFIZER INC-2015037917

PATIENT
  Age: 55 Year
  Sex: Female

DRUGS (31)
  1. ELOXATIN [Suspect]
     Active Substance: OXALIPLATIN
     Indication: PANCREATIC CARCINOMA METASTATIC
     Dosage: 85 MG/M2, EVERY 2 WEEKS
     Route: 042
     Dates: start: 20140909
  2. ZYRTEC [Concomitant]
     Active Substance: CETIRIZINE HYDROCHLORIDE
     Dosage: 10 MG, DAILY
     Route: 048
  3. MAGIC MOUTHWASH [Concomitant]
     Active Substance: DIPHENHYDRAMINE HYDROCHLORIDE\LIDOCAINE HYDROCHLORIDE\NYSTATIN
     Dosage: UNK, AS NEEDED (SWISH AND SWALLOW 5 ML 4 (FOUR) TIMES A DAY)
  4. ZOFRAN ODT [Concomitant]
     Active Substance: ONDANSETRON HYDROCHLORIDE
     Indication: PAIN
     Dosage: 4 MG, AS NEEDED (EVERY 6 (SIX) HOUR)
     Route: 048
  5. CAMPTOSAR [Suspect]
     Active Substance: IRINOTECAN HYDROCHLORIDE
     Dosage: 335 MG (180 MG/M2), EVERY 2 WEEKS
     Route: 042
     Dates: start: 20150106
  6. DEXTROSE. [Concomitant]
     Active Substance: DEXTROSE
     Dosage: 250 ML, AS NEEDED (INTRACATHETER)
     Dates: start: 20140909
  7. DEXAMETHASONE SODIUM PHOSPHATE. [Concomitant]
     Active Substance: DEXAMETHASONE SODIUM PHOSPHATE
     Dosage: 12 MG, 1X/DAY, CYCLIC
     Route: 042
     Dates: start: 20140909, end: 20150127
  8. BENICAR [Concomitant]
     Active Substance: OLMESARTAN MEDOXOMIL
     Dosage: 40 MG, DAILY
     Route: 048
  9. COMPAZINE [Concomitant]
     Active Substance: PROCHLORPERAZINE MALEATE
     Dosage: 10 MG, AS NEEDED (EVERY 6 (SIX) HOURS)
     Route: 048
  10. ZANTAC [Concomitant]
     Active Substance: RANITIDINE HYDROCHLORIDE
     Dosage: 50 MG, 1X/DAY, CYCLIC
     Route: 042
     Dates: start: 20140909, end: 20150127
  11. ATIVAN [Concomitant]
     Active Substance: LORAZEPAM
     Indication: ANXIETY
     Dosage: 0.5 MG, AS NEEDED (EVERY 8 (EIGHT) HOURS)
     Route: 048
  12. COUMADIN [Concomitant]
     Active Substance: WARFARIN SODIUM
     Dosage: 3 MG, DAILY
     Route: 048
  13. LEUCOVORIN CALCIUM. [Suspect]
     Active Substance: LEUCOVORIN CALCIUM
     Indication: PANCREATIC CARCINOMA METASTATIC
     Dosage: 37.2 MG (20 MG/M2), EVERY 2 WEEKS
     Route: 042
     Dates: start: 20140909
  14. ADRUCIL [Suspect]
     Active Substance: FLUOROURACIL
     Indication: PANCREATIC CARCINOMA METASTATIC
     Dosage: 400 MG/M2, EVERY 2 WEEKS
     Route: 040
     Dates: start: 20140909
  15. ADRUCIL [Suspect]
     Active Substance: FLUOROURACIL
     Dosage: 2400 MG/M2, EVERY 2 WEEKS
     Route: 041
     Dates: start: 20140909
  16. SODIUM CHLORIDE. [Concomitant]
     Active Substance: SODIUM CHLORIDE
     Dosage: UNK
     Route: 042
     Dates: start: 20140909
  17. ALOXI [Concomitant]
     Active Substance: PALONOSETRON HYDROCHLORIDE
     Dosage: 250 ?G, DAILY, CYCLIC
     Route: 042
     Dates: start: 20140909, end: 20150127
  18. DILAUDID [Concomitant]
     Active Substance: HYDROMORPHONE HYDROCHLORIDE
     Indication: PAIN
     Dosage: 2 MG, AS NEEDED (EVERY 4 (FOUR) HOURS)
     Route: 048
  19. EMEND [Concomitant]
     Active Substance: APREPITANT
     Dosage: 150 MG, 1X/DAY, CYCLIC
     Route: 042
     Dates: start: 20140909, end: 20150127
  20. DECADRON [Concomitant]
     Active Substance: DEXAMETHASONE
     Dosage: 8 MG, CYCLIC
     Route: 048
  21. HYDRODIURIL [Concomitant]
     Active Substance: HYDROCHLOROTHIAZIDE
     Dosage: 25 MG, DAILY
     Route: 048
  22. GLUCOPHAGE [Concomitant]
     Active Substance: METFORMIN HYDROCHLORIDE
     Dosage: 500 MG, DAILY (WITH DINNER)
     Route: 048
  23. LOVENOX [Concomitant]
     Active Substance: ENOXAPARIN SODIUM
     Dosage: UNK UNK, DAILY
     Route: 058
  24. LEVOTHROID [Concomitant]
     Active Substance: LEVOTHYROXINE SODIUM
     Dosage: 125 ?G, 1X/DAY (EVERY MORNING BEFORE BREAKFAST)
  25. K-DUR [Concomitant]
     Active Substance: POTASSIUM CHLORIDE
     Dosage: 20 MEQ, DAILY
     Route: 048
  26. KLOR-CON [Concomitant]
     Active Substance: POTASSIUM CHLORIDE
     Dosage: 20 MEQ, DAILY
     Route: 048
  27. CAMPTOSAR [Suspect]
     Active Substance: IRINOTECAN HYDROCHLORIDE
     Indication: PANCREATIC CARCINOMA METASTATIC
     Dosage: 367 MG (180 MG/M2), EVERY 2 WEEKS
     Route: 042
     Dates: start: 20140909, end: 20141209
  28. PERCOCET [Concomitant]
     Active Substance: ACETAMINOPHEN\OXYCODONE HYDROCHLORIDE
     Indication: PAIN
     Dosage: UNK, AS NEEDED (OXYCODONE 7.5MG-ACETAMINOPHEN 325 MG) (EVERY 4 (FOUR) HOURS)
     Route: 048
  29. COUMADIN [Concomitant]
     Active Substance: WARFARIN SODIUM
     Dosage: 10 MG, DAILY
     Route: 048
  30. HEPARIN [Concomitant]
     Active Substance: HEPARIN SODIUM
     Dosage: 500 IU, AS NEEDED (INTRACATHETER) (100 UNIT/ML INJECTION 500 UNITS
     Dates: start: 20140909
  31. SYNTHROID [Concomitant]
     Active Substance: LEVOTHYROXINE SODIUM
     Dosage: 125 ?G, 1X/DAY (EVERY MORNING BEFORE BREAKFAST)
     Route: 048

REACTIONS (13)
  - Hypokalaemia [Unknown]
  - Vomiting [Unknown]
  - Weight decreased [Unknown]
  - Product use issue [Unknown]
  - Dehydration [Unknown]
  - Fatigue [Unknown]
  - Urinary tract infection [Unknown]
  - Upper limb fracture [Unknown]
  - Pulmonary embolism [Unknown]
  - Thrombocytopenia [Unknown]
  - Nausea [Unknown]
  - Abdominal pain [Unknown]
  - Diarrhoea [Unknown]

NARRATIVE: CASE EVENT DATE: 2014
